FAERS Safety Report 6856336 (Version 2)
Quarter: 2014Q1

REPORT INFORMATION
  Report Type: Spontaneous
  Country: US (occurrence: US)
  Receive Date: 20081217
  Receipt Date: 20140124
  Transmission Date: 20141002
  Serious: No
  Sender: FDA-Public Use
  Company Number: US-ASTRAZENECA-2007UW28196

PATIENT
  Age: 78 Year
  Sex: Male
  Weight: 102.1 kg

DRUGS (10)
  1. CRESTOR [Suspect]
     Indication: BLOOD CHOLESTEROL INCREASED
     Route: 048
  2. CRESTOR [Suspect]
     Indication: BLOOD CHOLESTEROL ABNORMAL
     Route: 048
  3. CRESTOR [Suspect]
     Indication: BLOOD CHOLESTEROL INCREASED
     Route: 048
     Dates: start: 20071121
  4. CRESTOR [Suspect]
     Indication: BLOOD CHOLESTEROL ABNORMAL
     Route: 048
     Dates: start: 20071121
  5. PRILOSEC [Concomitant]
  6. ALTACE [Concomitant]
  7. LEVOTHYROXINE [Concomitant]
  8. KEFLEX [Concomitant]
     Indication: TINEA PEDIS
  9. BLOOD PRESSURE MED [Concomitant]
  10. LEVOXINE [Concomitant]
     Indication: HYPOTHYROIDISM

REACTIONS (7)
  - Tinea pedis [Unknown]
  - Hypothyroidism [Unknown]
  - Myalgia [Unknown]
  - Muscular weakness [Unknown]
  - Asthenia [Unknown]
  - Muscle spasms [Unknown]
  - Arthralgia [Unknown]
